FAERS Safety Report 18773686 (Version 1)
Quarter: 2021Q1

REPORT INFORMATION
  Report Type: Spontaneous
  Country: US (occurrence: US)
  Receive Date: 20210122
  Receipt Date: 20210122
  Transmission Date: 20210419
  Serious: Yes (Other)
  Sender: FDA-Public Use
  Company Number: None

PATIENT
  Age: 65 Year
  Sex: Female
  Weight: 72 kg

DRUGS (9)
  1. ASPIRIN. [Concomitant]
     Active Substance: ASPIRIN
  2. FISH OIL [Concomitant]
     Active Substance: FISH OIL
  3. LEXAPRO [Concomitant]
     Active Substance: ESCITALOPRAM OXALATE
  4. LOSARTAN. [Concomitant]
     Active Substance: LOSARTAN
  5. PAROXETINE. [Concomitant]
     Active Substance: PAROXETINE
     Dates: start: 20200103
  6. CASIRIVIMAB?IMDEVIMAB [Suspect]
     Active Substance: CASIRIVIMAB\IMDEVIMAB
     Indication: COVID-19
     Dosage: ?          OTHER FREQUENCY:ONCE;?
     Route: 042
     Dates: start: 20210115, end: 20210115
  7. PROBIOTIC [Concomitant]
     Active Substance: PROBIOTICS NOS
  8. PREDNISONE. [Concomitant]
     Active Substance: PREDNISONE
     Dates: start: 20210117
  9. TRIAMTERENE AND HYDROCHLOROTHIAZIDE [Concomitant]
     Active Substance: HYDROCHLOROTHIAZIDE\TRIAMTERENE
     Dates: start: 20210117

REACTIONS (9)
  - Abdominal pain [None]
  - Decreased appetite [None]
  - Cough [None]
  - Muscular weakness [None]
  - Diarrhoea [None]
  - Flank pain [None]
  - Blood potassium decreased [None]
  - Body temperature increased [None]
  - Blood urea increased [None]

NARRATIVE: CASE EVENT DATE: 20210120
